FAERS Safety Report 25948185 (Version 2)
Quarter: 2025Q4

REPORT INFORMATION
  Report Type: Spontaneous
  Country: AR (occurrence: AR)
  Receive Date: 20251022
  Receipt Date: 20251028
  Transmission Date: 20260118
  Serious: No
  Sender: SANOFI AVENTIS
  Company Number: AR-SANOFI-02691228

PATIENT

DRUGS (2)
  1. REZUROCK [Suspect]
     Active Substance: BELUMOSUDIL
     Indication: Chronic graft versus host disease
     Dosage: UNK
     Dates: start: 20251017
  2. REZUROCK [Suspect]
     Active Substance: BELUMOSUDIL
     Dates: start: 20251017

REACTIONS (1)
  - No adverse event [Not Recovered/Not Resolved]
